FAERS Safety Report 8620018-2 (Version None)
Quarter: 2012Q3

REPORT INFORMATION
  Report Type: 
  Country: None (occurrence: None)
  Receive Date: 20120824
  Receipt Date: 20120820
  Transmission Date: 20120928
  Serious: Yes (Other)
  Sender: FDA-Public Use
  Company Number: PHHY2012IL068310

PATIENT
  Sex: Male

DRUGS (6)
  1. BACLOFEN [Concomitant]
     Route: 048
  2. GILENYA [Suspect]
     Indication: MULTIPLE SCLEROSIS
     Dosage: 0.5 MG, QD
     Route: 048
     Dates: start: 20120711
  3. CLONAZEPAM [Concomitant]
     Route: 048
  4. CANNABIS [Concomitant]
  5. TRAMADOL HCL [Concomitant]
     Route: 048
  6. GABAPENTIN [Concomitant]
     Route: 048

REACTIONS (6)
  - MUSCLE SPASMS [None]
  - CHILLS [None]
  - SOMNOLENCE [None]
  - PAIN IN EXTREMITY [None]
  - MUSCLE SPASTICITY [None]
  - PIGMENTATION DISORDER [None]
